FAERS Safety Report 12122478 (Version 2)
Quarter: 2016Q1

REPORT INFORMATION
  Report Type: Spontaneous
  Country: FR (occurrence: FR)
  Receive Date: 20160226
  Receipt Date: 20160308
  Transmission Date: 20160526
  Serious: Yes (Hospitalization, Other)
  Sender: FDA-Public Use
  Company Number: FR-ASTRAZENECA-2016SE18729

PATIENT
  Age: 32838 Day
  Sex: Female

DRUGS (14)
  1. DIFFU-K [Concomitant]
     Active Substance: POTASSIUM CHLORIDE
  2. ZYMAD [Concomitant]
     Active Substance: CHOLECALCIFEROL
  3. INEXIUM [Suspect]
     Active Substance: ESOMEPRAZOLE
     Route: 048
  4. LASILIX [Concomitant]
     Active Substance: FUROSEMIDE
  5. DAFALGAN [Concomitant]
     Active Substance: ACETAMINOPHEN
     Route: 065
  6. TRIMEBUTINE [Concomitant]
     Active Substance: TRIMEBUTINE
  7. PREVISCAN [Concomitant]
     Active Substance: FLUINDIONE
  8. ACTISKENAN [Suspect]
     Active Substance: MORPHINE SULFATE
     Dosage: 10MG IN THE MORNING, 20MG IN THE EVENING AND 5MG IF NEEDED
     Route: 048
  9. PYOSTACINE [Concomitant]
     Active Substance: PRISTINAMYCIN
  10. TRANSIPEG [Concomitant]
     Active Substance: POLYETHYLENE GLYCOL 3350
  11. LYRICA [Suspect]
     Active Substance: PREGABALIN
     Route: 048
  12. DRIPTANE [Suspect]
     Active Substance: OXYBUTYNIN
     Route: 048
  13. DUROGESIC [Suspect]
     Active Substance: FENTANYL
     Route: 062
  14. NEFOPAM [Suspect]
     Active Substance: NEFOPAM
     Route: 065

REACTIONS (2)
  - Fall [Recovered/Resolved with Sequelae]
  - Cerebral haemorrhage [Unknown]

NARRATIVE: CASE EVENT DATE: 20160129
